FAERS Safety Report 4444548-2 (Version None)
Quarter: 2004Q3

REPORT INFORMATION
  Report Type: 
  Country: None (occurrence: None)
  Receive Date: 20040902
  Receipt Date: 20040823
  Transmission Date: 20050211
  Serious: Yes (Hospitalization)
  Sender: FDA-Public Use
  Company Number: 040823-0000413

PATIENT
  Age: 34 Year
  Sex: Male

DRUGS (1)
  1. DESOXYN [Suspect]

REACTIONS (12)
  - ASTHENIA [None]
  - CARDIAC MURMUR [None]
  - DIZZINESS [None]
  - DYSPNOEA AT REST [None]
  - DYSPNOEA EXERTIONAL [None]
  - HAEMODIALYSIS [None]
  - HYPERKALAEMIA [None]
  - METABOLIC ACIDOSIS [None]
  - NAUSEA [None]
  - RENAL FAILURE ACUTE [None]
  - VENTRICULAR TACHYCARDIA [None]
  - VOMITING [None]
